FAERS Safety Report 14330498 (Version 1)
Quarter: 2017Q4

REPORT INFORMATION
  Report Type: Report from Study
  Country: CA (occurrence: CA)
  Receive Date: 20171227
  Receipt Date: 20171227
  Transmission Date: 20180321
  Serious: Yes (Other)
  Sender: FDA-Public Use
  Company Number: CA-HLSUS-2017-CA-001152

PATIENT
  Age: 87 Year
  Sex: Male

DRUGS (5)
  1. CLOZARIL [Suspect]
     Active Substance: CLOZAPINE
     Indication: HALLUCINATION
     Dosage: 25 MG
     Route: 048
     Dates: start: 20140318
  2. ACETAMINOPHEN. [Concomitant]
     Active Substance: ACETAMINOPHEN
     Indication: PAIN
     Dosage: 650 MG
     Route: 048
     Dates: start: 20081221
  3. VITAMIN D [Concomitant]
     Active Substance: CHOLECALCIFEROL
     Dosage: 1000 QAM
  4. COUMADIN [Concomitant]
     Active Substance: WARFARIN SODIUM
     Dates: start: 20171118
  5. VITAMIN B12 [Concomitant]
     Active Substance: CYANOCOBALAMIN
     Dosage: 1000 INTERNATIONAL UNITS QAM

REACTIONS (5)
  - Cardiac failure congestive [Unknown]
  - Hypertension [Unknown]
  - Parkinson^s disease [Unknown]
  - Chronic obstructive pulmonary disease [Unknown]
  - Constipation [Unknown]

NARRATIVE: CASE EVENT DATE: 20171105
